FAERS Safety Report 11776238 (Version 1)
Quarter: 2015Q4

REPORT INFORMATION
  Report Type: Spontaneous
  Country: IT (occurrence: IT)
  Receive Date: 20151125
  Receipt Date: 20151125
  Transmission Date: 20160304
  Serious: Yes (Hospitalization)
  Sender: FDA-Public Use
  Company Number: IT-ROCHE-1665750

PATIENT
  Age: 70 Year
  Sex: Male

DRUGS (2)
  1. AVASTIN [Suspect]
     Active Substance: BEVACIZUMAB
     Indication: COLORECTAL CANCER METASTATIC
     Dosage: 1 X 400 MG VIAL
     Route: 042
     Dates: start: 20130911, end: 20150826
  2. AVASTIN [Suspect]
     Active Substance: BEVACIZUMAB
     Dosage: 1 X 100 MG VIAL
     Route: 042
     Dates: start: 20130911, end: 20150826

REACTIONS (2)
  - Acute myocardial infarction [Recovered/Resolved with Sequelae]
  - Atrial fibrillation [Recovered/Resolved with Sequelae]

NARRATIVE: CASE EVENT DATE: 20150827
